FAERS Safety Report 7862460-3 (Version None)
Quarter: 2011Q4

REPORT INFORMATION
  Report Type: 
  Country: None (occurrence: None)
  Receive Date: 20111027
  Receipt Date: 20101104
  Transmission Date: 20120403
  Serious: No
  Sender: FDA-Public Use
  Company Number: US-AMGEN-USASP2010003534

PATIENT
  Age: 45 Year
  Sex: Male

DRUGS (1)
  1. ENBREL [Suspect]
     Indication: ANKYLOSING SPONDYLITIS
     Dates: start: 20100501

REACTIONS (4)
  - PERIRECTAL ABSCESS [None]
  - DECREASED APPETITE [None]
  - ABDOMINAL PAIN [None]
  - DRUG INEFFECTIVE [None]
